FAERS Safety Report 24820467 (Version 1)
Quarter: 2025Q1

REPORT INFORMATION
  Report Type: Spontaneous
  Country: US (occurrence: US)
  Receive Date: 20250108
  Receipt Date: 20250108
  Transmission Date: 20250409
  Serious: Yes (Other)
  Sender: NOVO NORDISK
  Company Number: US-NOVOPROD-761630

PATIENT
  Age: 77 Year
  Sex: Female

DRUGS (4)
  1. NOVOLOG MIX 70/30 [Suspect]
     Active Substance: INSULIN ASPART
     Indication: Product used for unknown indication
     Route: 065
     Dates: start: 20140801
  2. NOVOLOG MIX 70/30 [Suspect]
     Active Substance: INSULIN ASPART
     Route: 065
     Dates: end: 20200721
  3. NOVOLOG MIX 70/30 [Suspect]
     Active Substance: INSULIN ASPART
     Route: 065
  4. NOVOLOG MIX 70/30 [Suspect]
     Active Substance: INSULIN ASPART
     Dosage: 50 IU, BID
     Route: 065
     Dates: start: 201701

REACTIONS (5)
  - Cataract [Unknown]
  - Gastroenteritis viral [Unknown]
  - Herpes zoster [Unknown]
  - Blood glucose decreased [Recovered/Resolved]
  - Expired product administered [Unknown]

NARRATIVE: CASE EVENT DATE: 20170101
